FAERS Safety Report 8102821-0 (Version None)
Quarter: 2012Q1

REPORT INFORMATION
  Report Type: 
  Country: None (occurrence: None)
  Receive Date: 20120127
  Receipt Date: 20120119
  Transmission Date: 20120608
  Serious: Yes (Disabling, Other)
  Sender: FDA-Public Use
  Company Number: 2012SP003470

PATIENT
  Age: 62 Year
  Sex: Male

DRUGS (7)
  1. LANSOPRAZOLE [Concomitant]
  2. RAMIPRIL [Concomitant]
  3. AMLODIPINE [Concomitant]
  4. MIRTAZAPINE [Suspect]
     Indication: INSOMNIA
     Dosage: 15 MG; PO ; 30 MG;PO
     Route: 048
     Dates: start: 20110118, end: 20111108
  5. MIRTAZAPINE [Suspect]
     Indication: INSOMNIA
     Dosage: 15 MG; PO ; 30 MG;PO
     Route: 048
     Dates: start: 20111108, end: 20111117
  6. NALOXONE HCL [Concomitant]
  7. DIAZEPAM [Concomitant]

REACTIONS (7)
  - INSOMNIA [None]
  - HALLUCINATION, AUDITORY [None]
  - HYPERTENSIVE CRISIS [None]
  - DEPRESSED MOOD [None]
  - HOSTILITY [None]
  - IMPAIRED SELF-CARE [None]
  - ANGER [None]
